FAERS Safety Report 8477940 (Version 2)
Quarter: 2013Q1

REPORT INFORMATION
  Report Type: Spontaneous
  Country: US (occurrence: US)
  Receive Date: 20120327
  Receipt Date: 20130318
  Transmission Date: 20140127
  Serious: Yes (Other)
  Sender: FDA-Public Use
  Company Number: US-PFIZER INC-2012074484

PATIENT
  Age: 75 Year
  Sex: Female
  Weight: 62.13 kg

DRUGS (8)
  1. LYRICA [Suspect]
     Indication: NEURALGIA
     Dosage: 25 MG CAPSULES EIGHT A DAY
     Route: 048
  2. LYRICA [Suspect]
     Dosage: 100 MG CAPSULES TWO A DAY
     Route: 048
  3. LYRICA [Suspect]
     Dosage: 50 MG CAPSULE FOUR A DAY
     Route: 048
  4. OXYCODONE HYDROCHLORIDE [Suspect]
     Dosage: UNK
  5. MORPHINE SULFATE [Suspect]
     Dosage: UNK
  6. PANCRELIPASE [Concomitant]
     Indication: PANCREATITIS
     Dosage: 2 DF OF ^500 UNITS^, 3X/DAY
  7. TRAMADOL [Concomitant]
     Dosage: 50 MG EIGHT A DAY
  8. TRAMADOL [Concomitant]
     Dosage: 50 MG FOUR A DAY

REACTIONS (8)
  - Blindness [Unknown]
  - Joint swelling [Unknown]
  - Drug ineffective [Unknown]
  - Drug intolerance [Unknown]
  - Balance disorder [Unknown]
  - Headache [Not Recovered/Not Resolved]
  - Somnolence [Not Recovered/Not Resolved]
  - Impaired work ability [Unknown]
